FAERS Safety Report 16695634 (Version 2)
Quarter: 2019Q3

REPORT INFORMATION
  Report Type: Spontaneous
  Country: ES (occurrence: ES)
  Receive Date: 20190813
  Receipt Date: 20190821
  Transmission Date: 20191004
  Serious: Yes (Hospitalization, Other)
  Sender: FDA-Public Use
  Company Number: ES-AUROBINDO-AUR-APL-2019-046045

PATIENT

DRUGS (3)
  1. HEPARIN [Suspect]
     Active Substance: HEPARIN SODIUM
     Indication: ANTIPLATELET THERAPY
     Dosage: UNK
     Route: 065
  2. HEPARIN [Suspect]
     Active Substance: HEPARIN SODIUM
     Indication: CARDIO-RESPIRATORY ARREST
  3. CLOPIDOGREL [Suspect]
     Active Substance: CLOPIDOGREL BISULFATE
     Indication: ANTIPLATELET THERAPY
     Dosage: UNK
     Route: 065

REACTIONS (5)
  - Cerebral haemorrhage [Recovering/Resolving]
  - Condition aggravated [Unknown]
  - Haemorrhage [Recovering/Resolving]
  - Neurological decompensation [Unknown]
  - Nervous system disorder [Recovering/Resolving]
